FAERS Safety Report 18766791 (Version 1)
Quarter: 2021Q1

REPORT INFORMATION
  Report Type: Spontaneous
  Country: US (occurrence: US)
  Receive Date: 20210120
  Receipt Date: 20210120
  Transmission Date: 20210419
  Serious: Yes (Hospitalization)
  Sender: FDA-Public Use
  Company Number: None

PATIENT
  Age: 69 Year
  Sex: Female
  Weight: 81.19 kg

DRUGS (16)
  1. HUMALOG [Concomitant]
     Active Substance: INSULIN LISPRO
  2. CAPECITABINE. [Suspect]
     Active Substance: CAPECITABINE
     Indication: BREAST CANCER
     Route: 048
     Dates: start: 20200824, end: 20210120
  3. OTEZLA [Concomitant]
     Active Substance: APREMILAST
  4. HERCEPTIN [Concomitant]
     Active Substance: TRASTUZUMAB
  5. ATIVAN [Concomitant]
     Active Substance: LORAZEPAM
  6. OXYBUTYNIN CHLORIDE. [Concomitant]
     Active Substance: OXYBUTYNIN CHLORIDE
  7. OXYCONTIN [Concomitant]
     Active Substance: OXYCODONE HYDROCHLORIDE
  8. TRAMADOL HCL [Concomitant]
     Active Substance: TRAMADOL HYDROCHLORIDE
  9. COZAAR [Concomitant]
     Active Substance: LOSARTAN POTASSIUM
  10. AMBIEN [Concomitant]
     Active Substance: ZOLPIDEM TARTRATE
  11. PREDNISONE. [Concomitant]
     Active Substance: PREDNISONE
  12. TYLENOL WITH CODEINE [Concomitant]
     Active Substance: ACETAMINOPHEN\CODEINE PHOSPHATE
  13. VITAMIN K2 [Concomitant]
     Active Substance: MENAQUINONE 6
  14. ONDANSETRON [Concomitant]
     Active Substance: ONDANSETRON
  15. NEURONTIN [Concomitant]
     Active Substance: GABAPENTIN
  16. VISTARIL [Concomitant]
     Active Substance: HYDROXYZINE PAMOATE

REACTIONS (1)
  - Hospitalisation [None]

NARRATIVE: CASE EVENT DATE: 20210120
